FAERS Safety Report 7903760-8 (Version None)
Quarter: 2011Q4

REPORT INFORMATION
  Report Type: 
  Country: None (occurrence: None)
  Receive Date: 20111109
  Receipt Date: 20111103
  Transmission Date: 20120403
  Serious: Yes (Life-Threatening, Hospitalization)
  Sender: FDA-Public Use
  Company Number: US-ROCHE-798074

PATIENT
  Age: 71 Year
  Sex: Male
  Weight: 66.4 kg

DRUGS (6)
  1. DOCETAXEL [Suspect]
     Indication: PROSTATE CANCER METASTATIC
     Dosage: OVER 60 MINUTES ON DAY 1. LAST DOSE PRIOR TO SAE ON 14 JUN 2011.
     Route: 042
  2. PREDNISONE TAB [Suspect]
     Dosage: TOTAL DOSE:27.5 MG, DELAYED 7 DAYS
  3. PREDNISONE TAB [Suspect]
     Indication: PROSTATE CANCER METASTATIC
     Dosage: LAST DOSE:11 JUL 2011
     Route: 048
  4. AVASTIN [Suspect]
     Indication: PROSTATE CANCER METASTATIC
     Dosage: LAST DOSE:14 JUN 2011, IV OVER 30-90 MINUTES ON DAY 1.
     Route: 042
  5. LENALIDOMIDE [Suspect]
     Indication: PROSTATE CANCER METASTATIC
     Dosage: QD, ON DAYS 1-14. LAST DOSE PRIOR TO SAE ON 27 JUN 2011.
     Route: 048
  6. LENALIDOMIDE [Suspect]
     Dosage: DELAYED FOR 7 DAYS. TOTAL DOSE 275 MG

REACTIONS (7)
  - HAEMATURIA [None]
  - RENAL FAILURE ACUTE [None]
  - ANAEMIA [None]
  - HYPOALBUMINAEMIA [None]
  - URINARY TRACT INFECTION [None]
  - SEPSIS [None]
  - BLOOD CREATININE INCREASED [None]
